FAERS Safety Report 14986926 (Version 2)
Quarter: 2019Q3

REPORT INFORMATION
  Report Type: Report from Study
  Country: US (occurrence: US)
  Receive Date: 20180608
  Receipt Date: 20190816
  Transmission Date: 20191004
  Serious: Yes (Other)
  Sender: FDA-Public Use
  Company Number: US-ROCHE-2135307

PATIENT
  Sex: Female
  Weight: 70.37 kg

DRUGS (7)
  1. SYNTHROID [Concomitant]
     Active Substance: LEVOTHYROXINE SODIUM
  2. CLONIDINE. [Concomitant]
     Active Substance: CLONIDINE
     Route: 048
  3. CALCIUM CITRATE WITH VITAMIN D3 [Concomitant]
     Active Substance: CALCIUM CITRATE\CHOLECALCIFEROL
     Dosage: 315 MG-200 IU
     Route: 048
  4. OCREVUS [Suspect]
     Active Substance: OCRELIZUMAB
     Indication: RELAPSING MULTIPLE SCLEROSIS
     Dosage: DAY 1 AND DAY 15?DATE OF TREATMENT: 09/AUG/2018, 11/FEB/2019
     Route: 042
     Dates: start: 20170830
  5. CICLOPIROX. [Concomitant]
     Active Substance: CICLOPIROX
     Route: 061
  6. OCREVUS [Suspect]
     Active Substance: OCRELIZUMAB
     Dosage: SECOND INFUSION
     Route: 042
     Dates: start: 20180215
  7. VITAMIN D3 [Concomitant]
     Active Substance: CHOLECALCIFEROL
     Route: 048

REACTIONS (20)
  - Muscle spasms [Unknown]
  - Hyperhidrosis [Unknown]
  - Headache [Unknown]
  - Temperature intolerance [Unknown]
  - Fatigue [Unknown]
  - Vision blurred [Unknown]
  - Rash [Unknown]
  - Feeling abnormal [Unknown]
  - Lhermitte^s sign [Unknown]
  - Hypoacusis [Unknown]
  - Carpal tunnel syndrome [Unknown]
  - Hypoaesthesia [Unknown]
  - Fungal infection [Unknown]
  - Diplopia [Unknown]
  - Paraesthesia [Unknown]
  - Dizziness [Unknown]
  - Acoustic neuroma [Unknown]
  - Infection [Unknown]
  - Pain of skin [Unknown]
  - Cervical spinal stenosis [Unknown]
